FAERS Safety Report 6572180-3 (Version None)
Quarter: 2010Q1

REPORT INFORMATION
  Report Type: 
  Country: None (occurrence: None)
  Receive Date: 20100205
  Receipt Date: 20100126
  Transmission Date: 20100710
  Serious: Yes (Other)
  Sender: FDA-Public Use
  Company Number: B0631146A

PATIENT
  Age: 47 Year
  Sex: Male

DRUGS (3)
  1. ZIDOVUDINE [Suspect]
     Dates: start: 20060810
  2. LAMIVUDINE [Suspect]
  3. EFAVIRENZ [Suspect]

REACTIONS (9)
  - HYPOKINESIA [None]
  - IMMUNE RECONSTITUTION SYNDROME [None]
  - INDURATION [None]
  - NODULE [None]
  - OEDEMA PERIPHERAL [None]
  - OSTEOMYELITIS [None]
  - SKIN ULCER [None]
  - SPOROTRICHOSIS [None]
  - TENOSYNOVITIS [None]
